FAERS Safety Report 8836482 (Version 6)
Quarter: 2013Q1

REPORT INFORMATION
  Report Type: Report from Study
  Country: JP (occurrence: JP)
  Receive Date: 20121011
  Receipt Date: 20130312
  Transmission Date: 20140127
  Serious: Yes (Death, Other)
  Sender: FDA-Public Use
  Company Number: JP-EISAI INC-E7389-03101-CLI-JP

PATIENT
  Age: 52 Year
  Sex: Female
  Weight: 59 kg

DRUGS (20)
  1. HALAVEN [Suspect]
     Indication: BREAST CANCER RECURRENT
     Route: 041
     Dates: start: 20110909, end: 20110930
  2. HALAVEN [Suspect]
     Indication: METASTASES TO LUNG
     Route: 041
     Dates: start: 20111014, end: 20111028
  3. HALAVEN [Suspect]
     Indication: METASTASES TO LYMPH NODES
     Route: 041
     Dates: start: 20111104, end: 20111104
  4. HALAVEN [Suspect]
     Dosage: 1.19 - 1.23MG/M2
     Route: 041
     Dates: start: 20111118, end: 20111230
  5. GLYPHAGEN [Concomitant]
     Indication: HEPATIC FUNCTION ABNORMAL
     Route: 041
  6. ADELAVIN [Concomitant]
     Indication: HEPATIC FUNCTION ABNORMAL
     Route: 041
  7. ALOXI [Concomitant]
     Indication: PROPHYLAXIS OF NAUSEA AND VOMITING
     Route: 041
  8. WAKADENIN [Concomitant]
     Indication: PROPHYLAXIS
     Route: 048
  9. MECOBALAMIN [Concomitant]
     Indication: NEUROPATHY PERIPHERAL
     Route: 048
  10. URDESTON [Concomitant]
     Indication: HEPATIC FUNCTION ABNORMAL
     Route: 048
  11. SELTOUCH [Concomitant]
  12. TRAMAL [Concomitant]
     Route: 048
  13. HOKUNALIN TAPE [Concomitant]
  14. MAGMITT [Concomitant]
     Indication: PROPHYLAXIS
     Route: 048
  15. ZOMETA [Concomitant]
     Indication: METASTASES TO BONE
     Route: 041
  16. SEIBULE [Concomitant]
     Route: 048
  17. AMARYL [Concomitant]
     Route: 048
  18. SELTOUCH [Concomitant]
  19. DUROTEP [Concomitant]
  20. NAIXAN [Concomitant]
     Route: 048

REACTIONS (2)
  - Interstitial lung disease [Not Recovered/Not Resolved]
  - Malignant neoplasm progression [Fatal]
